FAERS Safety Report 14109936 (Version 1)
Quarter: 2017Q4

REPORT INFORMATION
  Report Type: Spontaneous
  Country: US (occurrence: US)
  Receive Date: 20171020
  Receipt Date: 20171020
  Transmission Date: 20180321
  Serious: No
  Sender: FDA-Public Use
  Company Number: US-TEVA-777522ACC

PATIENT
  Age: 75 Year
  Sex: Female
  Weight: 68.1 kg

DRUGS (1)
  1. MICONAZOLE. [Suspect]
     Active Substance: MICONAZOLE
     Indication: FUNGAL INFECTION
     Dosage: 200 MILLIGRAM DAILY; COMBINATION PACK SUPPOSITORY + CREAM
     Dates: start: 20170307, end: 20170610

REACTIONS (1)
  - Drug ineffective [Unknown]
